FAERS Safety Report 5118537-9 (Version None)
Quarter: 2006Q3

REPORT INFORMATION
  Report Type: 
  Country: None (occurrence: None)
  Receive Date: 20060927
  Receipt Date: 20060918
  Transmission Date: 20061208
  Serious: Yes (Disabling, Other)
  Sender: FDA-Public Use
  Company Number: 2006112434

PATIENT
  Sex: Male

DRUGS (7)
  1. TAHOR (ATORVASTATIN) [Suspect]
     Dosage: 20 MG (10 MG, 1 D)
  2. DRUG (DRUG) [Concomitant]
  3. TRANDOLAPRIL [Concomitant]
  4. CLOPIDOGREL BISULFATE [Concomitant]
  5. NICORANDIL (NICORANDIL) [Concomitant]
  6. NITROGLYCERIN [Concomitant]
  7. ESOMEPRAZOLE (ESOMEPRAZOLE) [Concomitant]

REACTIONS (1)
  - TENDON RUPTURE [None]
